FAERS Safety Report 10732047 (Version 1)
Quarter: 2015Q1

REPORT INFORMATION
  Report Type: Spontaneous
  Country: US (occurrence: US)
  Receive Date: 20150123
  Receipt Date: 20150123
  Transmission Date: 20150721
  Serious: No
  Sender: FDA-Public Use
  Company Number: US-BRISTOL-MYERS SQUIBB COMPANY-BMS-2015-003275

PATIENT
  Age: 55 Year
  Weight: 134.69 kg

DRUGS (4)
  1. FARXIGA [Suspect]
     Active Substance: DAPAGLIFLOZIN PROPANEDIOL
     Indication: TYPE 2 DIABETES MELLITUS
     Dosage: 10 MG, QD
     Route: 048
  2. JANUVIA [Concomitant]
     Active Substance: SITAGLIPTIN PHOSPHATE
  3. ASPIRIN                            /00002701/ [Concomitant]
     Active Substance: ASPIRIN
  4. SIMVASTATIN. [Concomitant]
     Active Substance: SIMVASTATIN

REACTIONS (4)
  - Blood glucose decreased [Unknown]
  - Product quality issue [Not Recovered/Not Resolved]
  - Malaise [Unknown]
  - Abdominal discomfort [Unknown]

NARRATIVE: CASE EVENT DATE: 20150115
